FAERS Safety Report 13452118 (Version 3)
Quarter: 2017Q2

REPORT INFORMATION
  Report Type: Other
  Country: AT (occurrence: AT)
  Receive Date: 20170418
  Receipt Date: 20170501
  Transmission Date: 20170830
  Serious: Yes (Hospitalization, Other)
  Sender: FDA-Public Use
  Company Number: AT-SHIRE-AT201708133

PATIENT
  Age: 58 Year
  Sex: Female
  Weight: 47 kg

DRUGS (6)
  1. CONVULEX                           /00052501/ [Concomitant]
     Active Substance: CARBAMAZEPINE
     Indication: PRODUCT USED FOR UNKNOWN INDICATION
     Dosage: UNK, UNKNOWN
     Route: 065
  2. DOMINAL                            /00002701/ [Concomitant]
     Active Substance: ASPIRIN
     Indication: PRODUCT USED FOR UNKNOWN INDICATION
     Dosage: UNK, UNKNOWN
     Route: 065
  3. REVESTIVE [Suspect]
     Active Substance: TEDUGLUTIDE
     Indication: SHORT-BOWEL SYNDROME
     Dosage: 0.11 ML, 1X/DAY:QD  (EVERY 24 HOURS)
     Route: 058
     Dates: start: 20160620
  4. REVESTIVE [Suspect]
     Active Substance: TEDUGLUTIDE
     Dosage: 0.11 ML, OTHER (EVERY 48 HOURS)
     Route: 058
  5. EUTHYROX [Concomitant]
     Active Substance: LEVOTHYROXINE SODIUM
     Indication: PRODUCT USED FOR UNKNOWN INDICATION
     Dosage: UNK, UNKNOWN
     Route: 065
  6. HYDAL [Concomitant]
     Active Substance: HYDROMORPHONE HYDROCHLORIDE
     Indication: PRODUCT USED FOR UNKNOWN INDICATION
     Dosage: UNK, UNKNOWN
     Route: 065

REACTIONS (7)
  - Colitis [Unknown]
  - Haemoglobin decreased [Unknown]
  - Night sweats [Unknown]
  - Gastrointestinal haemorrhage [Unknown]
  - Headache [Unknown]
  - Inappropriate schedule of drug administration [Not Recovered/Not Resolved]
  - Crohn^s disease [Unknown]

NARRATIVE: CASE EVENT DATE: 201704
